FAERS Safety Report 13965967 (Version 1)
Quarter: 2017Q3

REPORT INFORMATION
  Report Type: Spontaneous
  Country: None (occurrence: FI)
  Receive Date: 20170913
  Receipt Date: 20170913
  Transmission Date: 20171128
  Serious: Yes (Other)
  Sender: FDA-Public Use
  Company Number: FI-LABORATOIRE HRA PHARMA-2026034

PATIENT
  Age: 19 Year
  Sex: Female

DRUGS (1)
  1. ELLA [Suspect]
     Active Substance: ULIPRISTAL ACETATE
     Indication: POST COITAL CONTRACEPTION
     Route: 048
     Dates: start: 20160803, end: 20160803

REACTIONS (3)
  - Unintended pregnancy [None]
  - Vaginal haemorrhage [None]
  - Abortion spontaneous [None]
